FAERS Safety Report 18963362 (Version 1)
Quarter: 2021Q1

REPORT INFORMATION
  Report Type: Spontaneous
  Country: US (occurrence: US)
  Receive Date: 20210303
  Receipt Date: 20210303
  Transmission Date: 20210420
  Serious: Yes (Life-Threatening)
  Sender: FDA-Public Use
  Company Number: None

PATIENT
  Age: 55 Year
  Sex: Male
  Weight: 83.5 kg

DRUGS (5)
  1. BELATACEPT [Suspect]
     Active Substance: BELATACEPT
     Indication: RENAL TRANSPLANT
     Dosage: ?          OTHER FREQUENCY:MONTHLY;?
     Route: 042
     Dates: start: 20150105, end: 20210301
  2. PREDNISONE. [Concomitant]
     Active Substance: PREDNISONE
     Dates: start: 20130731
  3. MULTIVITAMIN [Concomitant]
     Active Substance: VITAMINS
     Dates: start: 20130731
  4. MYCOPHENOLATE SODIUM [Concomitant]
     Active Substance: MYCOPHENOLATE SODIUM
     Dates: start: 20130731
  5. LOSARTAN. [Concomitant]
     Active Substance: LOSARTAN
     Dates: start: 20201007

REACTIONS (2)
  - Malignant melanoma in situ [None]
  - Malignant melanoma [None]

NARRATIVE: CASE EVENT DATE: 20210127
